FAERS Safety Report 12449582 (Version 1)
Quarter: 2016Q2

REPORT INFORMATION
  Report Type: Other
  Country: CH (occurrence: CH)
  Receive Date: 20160609
  Receipt Date: 20160609
  Transmission Date: 20160815
  Serious: No
  Sender: FDA-Public Use
  Company Number: CH-LUPIN PHARMACEUTICALS INC.-2016-01550

PATIENT
  Age: 33 Year
  Sex: Female

DRUGS (5)
  1. OXCARBAZEPINE. [Interacting]
     Active Substance: OXCARBAZEPINE
     Indication: EPILEPSY
     Dosage: 1200 MG
     Route: 065
  2. RIFAMPICIN [Suspect]
     Active Substance: RIFAMPIN
     Indication: ACNE
     Dosage: 600 MG
     Route: 065
  3. CLINDAMYCIN [Concomitant]
     Active Substance: CLINDAMYCIN\CLINDAMYCIN PHOSPHATE
     Indication: ACNE
     Route: 065
  4. OXCARBAZEPINE. [Interacting]
     Active Substance: OXCARBAZEPINE
     Dosage: 1200 MG
     Route: 065
  5. OXCARBAZEPINE. [Interacting]
     Active Substance: OXCARBAZEPINE
     Dosage: FINAL DAILY DOSE 2,100 MG
     Route: 065

REACTIONS (2)
  - Drug interaction [Unknown]
  - Drug level below therapeutic [Recovered/Resolved]
